FAERS Safety Report 8448747-4 (Version None)
Quarter: 2012Q2

REPORT INFORMATION
  Report Type: 
  Country: None (occurrence: None)
  Receive Date: 20120619
  Receipt Date: 20120614
  Transmission Date: 20120825
  Serious: Yes (Other)
  Sender: FDA-Public Use
  Company Number: US-FRI-1000030340

PATIENT
  Age: 71 Year
  Sex: Male

DRUGS (9)
  1. VENTOLIN [Concomitant]
     Indication: EMPHYSEMA
     Dosage: AS NEEDED
  2. AMBIEN [Concomitant]
     Dosage: AS NEEDED
  3. METOPROLOL SUCCINATE [Concomitant]
     Indication: HYPERTENSION
     Dosage: 25 MG AM, 50 MG PM
     Route: 048
  4. SYMBICORT [Concomitant]
     Indication: EMPHYSEMA
     Dosage: 2 PUFFS TWICE DAILY
     Route: 048
  5. AMLODIPINE [Concomitant]
     Indication: HYPERTENSION
     Dosage: 10 MG
     Route: 048
  6. MULTIVITAMIN (NOS) [Concomitant]
     Dosage: 1 TABLET DAILY
     Route: 048
  7. FLONASE [Concomitant]
  8. DALIRESP [Suspect]
     Indication: EMPHYSEMA
     Dosage: 500 MCG
     Route: 048
     Dates: start: 20120420, end: 20120508
  9. PREVACID [Concomitant]
     Indication: GASTROOESOPHAGEAL REFLUX DISEASE
     Dosage: AS NEEDED

REACTIONS (8)
  - HEART RATE INCREASED [None]
  - COLD SWEAT [None]
  - MUSCLE SPASMS [None]
  - HEADACHE [None]
  - OFF LABEL USE [None]
  - BACK PAIN [None]
  - OXYGEN SATURATION DECREASED [None]
  - DIARRHOEA [None]
